FAERS Safety Report 18506698 (Version 28)
Quarter: 2024Q2

REPORT INFORMATION
  Report Type: Report from Study
  Country: US (occurrence: US)
  Receive Date: 20201116
  Receipt Date: 20240604
  Transmission Date: 20240716
  Serious: Yes (Hospitalization, Other)
  Sender: FDA-Public Use
  Company Number: US-SHIRE-US202029740

PATIENT
  Sex: Female

DRUGS (5)
  1. HUMAN IMMUNOGLOBULIN G [Suspect]
     Active Substance: HUMAN IMMUNOGLOBULIN G
     Indication: Immunodeficiency common variable
     Dosage: 8 GRAM
     Route: 058
  2. HUMAN IMMUNOGLOBULIN G [Suspect]
     Active Substance: HUMAN IMMUNOGLOBULIN G
     Indication: Primary immunodeficiency syndrome
     Dosage: 8 GRAM, 1/WEEK
     Route: 058
  3. INFLUENZA VIRUS VACCINE [Suspect]
     Active Substance: INFLUENZA VIRUS VACCINE
     Indication: Product used for unknown indication
     Dosage: UNK
     Route: 065
  4. COVID-19 VACCINE NOS [Suspect]
     Active Substance: COVID-19 VACCINE
     Indication: COVID-19 immunisation
     Dosage: UNK
     Route: 065
  5. LEVAQUIN [Suspect]
     Active Substance: LEVOFLOXACIN
     Indication: Product used for unknown indication
     Dosage: UNK
     Route: 065

REACTIONS (76)
  - Pseudomonas infection [Unknown]
  - Klebsiella infection [Unknown]
  - Kidney infection [Unknown]
  - Localised infection [Unknown]
  - Poor venous access [Unknown]
  - Dysphonia [Not Recovered/Not Resolved]
  - Cheilitis [Unknown]
  - Pharyngeal ulceration [Unknown]
  - Weight decreased [Unknown]
  - Pneumonia bacterial [Unknown]
  - Choking [Unknown]
  - Aspiration [Unknown]
  - Eye haemorrhage [Unknown]
  - Hemiparesis [Unknown]
  - Cough [Not Recovered/Not Resolved]
  - Tachycardia [Unknown]
  - Transient ischaemic attack [Unknown]
  - Irritable bowel syndrome [Unknown]
  - Upper-airway cough syndrome [Not Recovered/Not Resolved]
  - Lactose intolerance [Unknown]
  - Heart valve incompetence [Unknown]
  - Device issue [Unknown]
  - Muscular weakness [Not Recovered/Not Resolved]
  - Swelling [Unknown]
  - Erythema [Unknown]
  - Body temperature fluctuation [Unknown]
  - Mastocytosis [Unknown]
  - Lip injury [Unknown]
  - Postural orthostatic tachycardia syndrome [Unknown]
  - Bronchitis [Unknown]
  - Atrophy [Unknown]
  - Aphonia [Unknown]
  - Nasal ulcer [Unknown]
  - Haemorrhoids [Unknown]
  - Neck pain [Unknown]
  - Arthritis [Unknown]
  - Sinus disorder [Not Recovered/Not Resolved]
  - Head injury [Unknown]
  - Animal bite [Unknown]
  - COVID-19 [Unknown]
  - Malabsorption [Unknown]
  - Fall [Unknown]
  - Drug hypersensitivity [Unknown]
  - Dysphagia [Unknown]
  - Joint lock [Unknown]
  - Urinary tract infection [Unknown]
  - Nasal injury [Unknown]
  - Increased tendency to bruise [Unknown]
  - Body height decreased [Unknown]
  - Peripheral swelling [Unknown]
  - Fibromyalgia [Unknown]
  - Heart rate decreased [Unknown]
  - Upper respiratory tract infection [Unknown]
  - Hypersomnia [Unknown]
  - Liver function test increased [Unknown]
  - Feeling of body temperature change [Unknown]
  - Conjunctivitis [Unknown]
  - Injection site swelling [Unknown]
  - White blood cell count decreased [Unknown]
  - Feeling abnormal [Unknown]
  - Dysgeusia [Unknown]
  - Abdominal distension [Unknown]
  - Insomnia [Unknown]
  - Balance disorder [Unknown]
  - Feeling cold [Unknown]
  - Muscle spasms [Unknown]
  - Dyspepsia [Not Recovered/Not Resolved]
  - Pain in extremity [Unknown]
  - Malaise [Not Recovered/Not Resolved]
  - Dyspnoea [Unknown]
  - Back pain [Unknown]
  - Dizziness [Unknown]
  - Arthralgia [Unknown]
  - Diarrhoea [Unknown]
  - Fatigue [Not Recovered/Not Resolved]
  - Abdominal pain [Unknown]
